FAERS Safety Report 7421210-5 (Version None)
Quarter: 2011Q2

REPORT INFORMATION
  Report Type: 
  Country: None (occurrence: None)
  Receive Date: 20110418
  Receipt Date: 20110408
  Transmission Date: 20111010
  Serious: Yes (Death)
  Sender: FDA-Public Use
  Company Number: JP-ACTELION-A-CH2011-47284

PATIENT
  Age: 71 Year
  Sex: Male

DRUGS (8)
  1. TRACLEER [Suspect]
     Dosage: 6.25 MG, QD
     Route: 048
     Dates: start: 20080312, end: 20080324
  2. IMIDAPRIL HYDROCHLORIDE [Concomitant]
  3. SPIRONOLACTONE [Concomitant]
  4. ALLOPURINOL [Concomitant]
  5. OXYGEN [Concomitant]
  6. FUROSEMIDE [Concomitant]
  7. TRACLEER [Suspect]
     Indication: PULMONARY ARTERIAL HYPERTENSION
     Dosage: 3.125 MG, QD
     Route: 048
     Dates: start: 20080311, end: 20080311
  8. CARVEDILOL [Concomitant]

REACTIONS (4)
  - RESPIRATORY FAILURE [None]
  - CONDITION AGGRAVATED [None]
  - PNEUMONIA [None]
  - PULMONARY ARTERIAL HYPERTENSION [None]
